FAERS Safety Report 16084499 (Version 1)
Quarter: 2019Q1

REPORT INFORMATION
  Report Type: Spontaneous
  Country: US (occurrence: US)
  Receive Date: 20190318
  Receipt Date: 20190318
  Transmission Date: 20190418
  Serious: No
  Sender: FDA-Public Use
  Company Number: US-MILLICENT HOLDINGS LTD.-MILL20190167

PATIENT
  Sex: Female

DRUGS (1)
  1. FEMRING [Suspect]
     Active Substance: ESTRADIOL ACETATE
     Indication: VAGINAL PESSARY INSERTION
     Dosage: UNKNOWN
     Route: 067

REACTIONS (3)
  - Vaginal haemorrhage [Unknown]
  - Product use in unapproved indication [None]
  - Wrong technique in product usage process [None]
